FAERS Safety Report 4777191-6 (Version None)
Quarter: 2005Q3

REPORT INFORMATION
  Report Type: 
  Country: None (occurrence: None)
  Receive Date: 20050923
  Receipt Date: 20050913
  Transmission Date: 20060218
  Serious: Yes (Hospitalization)
  Sender: FDA-Public Use
  Company Number: JP-MERCK-0509USA02835

PATIENT
  Age: 80 Year
  Sex: Male

DRUGS (17)
  1. PEPCID RPD [Suspect]
     Route: 048
     Dates: start: 20050721, end: 20050913
  2. SINGULAIR [Suspect]
     Route: 048
     Dates: end: 20050913
  3. ALLOID G [Suspect]
     Route: 048
     Dates: start: 20050721, end: 20050913
  4. BIOFERMIN [Suspect]
     Route: 048
     Dates: end: 20050913
  5. VANCOMYCIN HYDROCHLORIDE [Concomitant]
     Route: 065
     Dates: start: 20050808, end: 20050906
  6. ERYTHROCIN [Concomitant]
     Route: 048
     Dates: start: 20050721
  7. HOKUNALIN [Concomitant]
     Route: 065
     Dates: start: 20050721
  8. ALFACALCIDOL [Concomitant]
     Route: 048
  9. CATAPRES [Concomitant]
     Route: 048
  10. ADALAT [Concomitant]
     Route: 048
  11. NORVASC [Concomitant]
     Route: 048
  12. DIOVAN [Concomitant]
     Route: 048
  13. CARDENALIN [Concomitant]
     Route: 048
  14. ARTIST [Concomitant]
     Route: 048
  15. CALCIUM CARBONATE [Concomitant]
     Route: 048
  16. ZOLPIDEM TARTRATE [Concomitant]
     Route: 048
  17. CATALIN-K [Concomitant]
     Route: 065

REACTIONS (1)
  - EOSINOPHIL COUNT INCREASED [None]
